FAERS Safety Report 18461420 (Version 1)
Quarter: 2020Q4

REPORT INFORMATION
  Report Type: Spontaneous
  Country: US (occurrence: US)
  Receive Date: 20201104
  Receipt Date: 20201104
  Transmission Date: 20210114
  Serious: Yes (Life-Threatening, Hospitalization, Other)
  Sender: FDA-Public Use
  Company Number: US-SCIEGEN-2020SCILIT00017

PATIENT
  Age: 67 Year
  Sex: Male

DRUGS (3)
  1. BICARBONATE [Interacting]
     Active Substance: SODIUM BICARBONATE
     Indication: ANURIA
  2. BICARBONATE [Interacting]
     Active Substance: SODIUM BICARBONATE
     Indication: ACIDOSIS
  3. METFORMIN HYDROCHLORIDETABLETS [Suspect]
     Active Substance: METFORMIN HYDROCHLORIDE
     Indication: TYPE 2 DIABETES MELLITUS

REACTIONS (10)
  - Gastroenteritis [Unknown]
  - Mucosal dryness [Unknown]
  - Mental status changes [Recovered/Resolved]
  - Somnolence [Recovered/Resolved]
  - Lactic acidosis [Recovered/Resolved]
  - Blood pressure decreased [Unknown]
  - Acute kidney injury [Recovering/Resolving]
  - Condition aggravated [Recovered/Resolved]
  - Toxicity to various agents [Unknown]
  - Hyperkalaemia [Recovered/Resolved]
